FAERS Safety Report 8715688 (Version 2)
Quarter: 2012Q4

REPORT INFORMATION
  Report Type: Report from Study
  Country: US (occurrence: US)
  Receive Date: 20120809
  Receipt Date: 20121024
  Transmission Date: 20130627
  Serious: Yes (Hospitalization, Other)
  Sender: FDA-Public Use
  Company Number: US-ABBOTT-12P-163-0963168-00

PATIENT
  Sex: Male
  Weight: 95.79 kg

DRUGS (7)
  1. HUMIRA 40 MG/ 0.8 ML PRE-FILLED SYRINGE [Suspect]
     Indication: RHEUMATOID ARTHRITIS
     Dosage: The patient did not have lot numbers to correlate to adverse events
     Route: 058
     Dates: start: 2002, end: 201005
  2. HUMIRA 40 MG/ 0.8 ML PRE-FILLED SYRINGE [Suspect]
     Route: 058
     Dates: start: 201008
  3. METHOTREXATE [Suspect]
     Indication: RHEUMATOID ARTHRITIS
     Route: 048
     Dates: start: 1985, end: 1989
  4. METHOTREXATE [Suspect]
     Route: 050
     Dates: start: 1991, end: 2002
  5. METOPROLOL [Concomitant]
     Indication: BLOOD PRESSURE
     Route: 048
  6. VITAMIN C [Concomitant]
     Indication: VITAMIN SUPPLEMENTATION
     Route: 048
  7. MULTIVITAMIN [Concomitant]
     Indication: VITAMIN SUPPLEMENTATION
     Route: 048

REACTIONS (13)
  - Hepatic cirrhosis [Recovered/Resolved]
  - Hepatic enzyme increased [Recovered/Resolved]
  - Malaise [Recovered/Resolved]
  - Hepatic cancer [Recovered/Resolved]
  - General physical health deterioration [Recovered/Resolved]
  - Feeling cold [Recovered/Resolved]
  - Tremor [Recovered/Resolved]
  - Pharyngeal haemorrhage [Recovered/Resolved]
  - Varices oesophageal [Recovered/Resolved]
  - Hernia [Not Recovered/Not Resolved]
  - Asthenia [Recovered/Resolved]
  - Arthralgia [Not Recovered/Not Resolved]
  - Walking aid user [Not Recovered/Not Resolved]
